FAERS Safety Report 5748207-5 (Version None)
Quarter: 2008Q2

REPORT INFORMATION
  Report Type: 
  Country: None (occurrence: None)
  Receive Date: 20080523
  Receipt Date: 20080515
  Transmission Date: 20081010
  Serious: Yes (Other)
  Sender: FDA-Public Use
  Company Number: FR-PFIZER INC-2008042594

PATIENT
  Age: 58 Year
  Sex: Female

DRUGS (1)
  1. SUTENT [Suspect]
     Indication: OVARIAN CANCER

REACTIONS (3)
  - PYREXIA [None]
  - TUMOUR HAEMORRHAGE [None]
  - TUMOUR NECROSIS [None]
